FAERS Safety Report 11213503 (Version 1)
Quarter: 2015Q2

REPORT INFORMATION
  Report Type: Spontaneous
  Country: US (occurrence: US)
  Receive Date: 20150623
  Receipt Date: 20150623
  Transmission Date: 20150821
  Serious: Yes (Other)
  Sender: FDA-Public Use
  Company Number: PHEH2015US011855

PATIENT
  Sex: Female

DRUGS (1)
  1. DIOVAN [Suspect]
     Active Substance: VALSARTAN
     Indication: PRODUCT USED FOR UNKNOWN INDICATION
     Dosage: 160 MG, UNK
     Route: 065

REACTIONS (8)
  - Peripheral swelling [Unknown]
  - Fall [Unknown]
  - Limb injury [Unknown]
  - Hand fracture [Unknown]
  - Vertigo [Unknown]
  - Dizziness [Unknown]
  - Pain [Unknown]
  - Ligament sprain [Unknown]
